FAERS Safety Report 9122906 (Version 1)
Quarter: 2013Q1

REPORT INFORMATION
  Report Type: Spontaneous
  Country: US (occurrence: US)
  Receive Date: 20130115
  Receipt Date: 20130115
  Transmission Date: 20140127
  Serious: No
  Sender: FDA-Public Use
  Company Number: US-009507513-1301USA006413

PATIENT
  Age: 2 Year
  Sex: Male
  Weight: 13.61 kg

DRUGS (1)
  1. CLARITIN CHEWABLE TABLETS [Suspect]
     Indication: SNEEZING
     Dosage: 10 MG, ONCE
     Route: 048
     Dates: start: 20130103

REACTIONS (1)
  - Accidental overdose [Unknown]
